FAERS Safety Report 25419907 (Version 3)
Quarter: 2025Q4

REPORT INFORMATION
  Report Type: Spontaneous
  Country: US (occurrence: US)
  Receive Date: 20250610
  Receipt Date: 20251019
  Transmission Date: 20260118
  Serious: No
  Sender: SANOFI AVENTIS
  Company Number: US-SA-2025SA163964

PATIENT
  Age: 66 Year
  Sex: Male
  Weight: 90.703 kg

DRUGS (10)
  1. DUPIXENT [Suspect]
     Active Substance: DUPILUMAB
     Indication: Chronic obstructive pulmonary disease
     Dosage: 600 MG, 1X
     Route: 058
     Dates: start: 2025, end: 2025
  2. DUPIXENT [Suspect]
     Active Substance: DUPILUMAB
     Dosage: 300 MG, QOW
     Route: 058
  3. FUROSEMIDE [Suspect]
     Active Substance: FUROSEMIDE
     Dosage: UNK
  4. EUCALYPTUS OIL [Concomitant]
     Active Substance: EUCALYPTUS OIL
  5. ALBUTEROL SULFATE [Concomitant]
     Active Substance: ALBUTEROL SULFATE
  6. OXYGEN [Concomitant]
     Active Substance: OXYGEN
  7. TYLENOL EXTRA STRENGTH [Concomitant]
     Active Substance: ACETAMINOPHEN
  8. PREDNISONE [Concomitant]
     Active Substance: PREDNISONE
  9. ALBUTEROL\IPRATROPIUM [Concomitant]
     Active Substance: ALBUTEROL\IPRATROPIUM
  10. ARFORMOTEROL TARTRATE [Concomitant]
     Active Substance: ARFORMOTEROL TARTRATE

REACTIONS (13)
  - Peripheral swelling [Recovering/Resolving]
  - Hypoaesthesia [Recovering/Resolving]
  - Paraesthesia [Recovering/Resolving]
  - Joint range of motion decreased [Recovering/Resolving]
  - Oxygen saturation decreased [Recovering/Resolving]
  - Gout [Recovering/Resolving]
  - Mobility decreased [Unknown]
  - Nasopharyngitis [Unknown]
  - Erythema [Recovering/Resolving]
  - Pain in extremity [Unknown]
  - Arthralgia [Recovering/Resolving]
  - Eye pruritus [Recovering/Resolving]
  - Dry eye [Recovering/Resolving]

NARRATIVE: CASE EVENT DATE: 20250101
